FAERS Safety Report 6015395-5 (Version None)
Quarter: 2008Q4

REPORT INFORMATION
  Report Type: 
  Country: None (occurrence: None)
  Receive Date: 20081218
  Receipt Date: 20081204
  Transmission Date: 20090506
  Serious: Yes (Death)
  Sender: FDA-Public Use
  Company Number: 2008SP025486

PATIENT
  Age: 68 Year
  Sex: Male

DRUGS (4)
  1. INTEGRILIN [Suspect]
     Indication: CORONARY ANGIOPLASTY
     Dosage: IV
     Route: 042
     Dates: start: 20050512, end: 20050512
  2. LOVENOX [Suspect]
     Indication: DRUG USE FOR UNKNOWN INDICATION
     Dosage: IV
     Route: 042
     Dates: start: 20080512, end: 20080512
  3. ASPIRIN [Suspect]
     Indication: DRUG USE FOR UNKNOWN INDICATION
     Dosage: 75 MG QD PO
     Route: 048
     Dates: start: 20050418, end: 20050512
  4. PLAVIX [Suspect]
     Indication: DRUG USE FOR UNKNOWN INDICATION
     Dosage: 75 MG QD PO
     Route: 048
     Dates: start: 20050418, end: 20050512

REACTIONS (5)
  - CHEST PAIN [None]
  - EXTRADURAL HAEMATOMA [None]
  - POST PROCEDURAL COMPLICATION [None]
  - QUADRIPLEGIA [None]
  - SPINAL CORD COMPRESSION [None]
